FAERS Safety Report 7325470-0 (Version None)
Quarter: 2011Q1

REPORT INFORMATION
  Report Type: 
  Country: None (occurrence: None)
  Receive Date: 20110302
  Receipt Date: 20110218
  Transmission Date: 20110831
  Serious: Yes (Hospitalization)
  Sender: FDA-Public Use
  Company Number: US-ELI_LILLY_AND_COMPANY-US201009002032

PATIENT
  Sex: Female
  Weight: 51.247 kg

DRUGS (11)
  1. PREMARIN [Concomitant]
  2. FERREX [Concomitant]
  3. TYLENOL                                 /SCH/ [Concomitant]
  4. FISH OIL [Concomitant]
  5. FLONASE [Concomitant]
  6. ASA [Concomitant]
  7. LISINOPRIL [Concomitant]
  8. LOPRESSOR [Concomitant]
  9. FORTEO [Suspect]
     Indication: OSTEOPOROSIS
     Dosage: UNK, DAILY (1/D)
     Route: 058
  10. SYNTHROID [Concomitant]
  11. CALCIUM [Concomitant]

REACTIONS (7)
  - MUSCLE SPASMS [None]
  - PNEUMONIA [None]
  - DEHYDRATION [None]
  - DIZZINESS [None]
  - BRONCHITIS [None]
  - RENAL FAILURE ACUTE [None]
  - LARYNGITIS [None]
